FAERS Safety Report 8737887 (Version 2)
Quarter: 2013Q4

REPORT INFORMATION
  Report Type: Report from Study
  Country: JP (occurrence: JP)
  Receive Date: 20120823
  Receipt Date: 20131107
  Transmission Date: 20140711
  Serious: Yes (Other)
  Sender: FDA-Public Use
  Company Number: JP-MERCK-2012SP010638

PATIENT
  Age: 54 Year
  Sex: Male
  Weight: 61 kg

DRUGS (6)
  1. PEGINTERFERON ALFA-2B [Suspect]
     Indication: CHRONIC HEPATITIS C
     Dosage: 100 MICROGRAM, QW
     Route: 058
     Dates: start: 20110204
  2. REBETOL [Suspect]
     Indication: CHRONIC HEPATITIS C
     Dosage: 100 MCG, QW
     Route: 058
     Dates: start: 20110204
  3. FERON [Suspect]
     Indication: CHRONIC HEPATITIS C
     Dosage: 3 MILLION IU, BID,6 DAYS A WEEK
     Route: 041
     Dates: start: 20110121, end: 20110203
  4. BLOPRESS [Concomitant]
     Indication: HYPERTENSION
     Dosage: 8 MG, QD, THE DIVIDED DOSE FREQUENCY IS UNCERTAIN
     Route: 048
  5. NORVASC [Concomitant]
     Indication: HYPERTENSION
     Dosage: 5 MG, QD, THE DIVIDED DOSE FREQUENCY IS UNCERTAIN
     Route: 048
  6. URSO [Concomitant]
     Indication: CHRONIC HEPATITIS C
     Dosage: 300 MG,QD, THE DIVIDED DOSE FREQUENCY IS UNCERTAIN
     Route: 048
     Dates: end: 20111222

REACTIONS (5)
  - Neutrophil count decreased [Recovered/Resolved]
  - White blood cell count decreased [Recovered/Resolved]
  - Pyrexia [Recovered/Resolved]
  - Arthralgia [Recovered/Resolved]
  - Palpitations [Not Recovered/Not Resolved]
